FAERS Safety Report 18889179 (Version 3)
Quarter: 2025Q3

REPORT INFORMATION
  Report Type: Spontaneous
  Country: CA (occurrence: CA)
  Receive Date: 20210212
  Receipt Date: 20250809
  Transmission Date: 20251021
  Serious: Yes (Life-Threatening, Hospitalization, Disabling, Other)
  Sender: ALEXION PHARMACEUTICALS
  Company Number: 2021A038188

PATIENT
  Age: 85 Year
  Sex: Female

DRUGS (7)
  1. TAGRISSO [Suspect]
     Active Substance: OSIMERTINIB
     Indication: Lung cancer metastatic
     Dosage: 80 MILLIGRAM, QD
     Dates: start: 20200731, end: 20200806
  2. ACETAMINOPHEN [Concomitant]
     Active Substance: ACETAMINOPHEN
     Route: 065
  3. DEXAMETHASONE [Concomitant]
     Active Substance: DEXAMETHASONE
     Route: 065
  4. GABAPENTIN [Concomitant]
     Active Substance: GABAPENTIN
     Route: 065
  5. HYDROMORPHONE [Concomitant]
     Active Substance: HYDROMORPHONE
     Route: 065
  6. PANTOPRAZOLE [Concomitant]
     Active Substance: PANTOPRAZOLE
     Route: 065
  7. SENOKOT [Concomitant]
     Active Substance: SENNOSIDES
     Route: 065

REACTIONS (9)
  - Deep vein thrombosis [Recovering/Resolving]
  - Dyspnoea [Recovering/Resolving]
  - Embolism venous [Recovering/Resolving]
  - Loss of consciousness [Recovering/Resolving]
  - Malaise [Recovering/Resolving]
  - Pain in extremity [Recovering/Resolving]
  - Pulmonary embolism [Recovering/Resolving]
  - Erythema [Recovering/Resolving]
  - Stomatitis [Recovering/Resolving]

NARRATIVE: CASE EVENT DATE: 20200804
